FAERS Safety Report 12078271 (Version 11)
Quarter: 2017Q1

REPORT INFORMATION
  Report Type: Report from Study
  Country: US (occurrence: US)
  Receive Date: 20160215
  Receipt Date: 20170307
  Transmission Date: 20170428
  Serious: Yes (Hospitalization)
  Sender: FDA-Public Use
  Company Number: US-AMGEN-USACT2016017614

PATIENT
  Age: 70 Year
  Sex: Female
  Weight: 98.3 kg

DRUGS (9)
  1. TALIMOGENE LAHERPAREPVEC [Suspect]
     Active Substance: TALIMOGENE LAHERPAREPVEC
     Indication: HEPATIC NEOPLASM
     Dosage: 1 ML, UNK
     Route: 025
     Dates: start: 20160208
  2. ALEVE [Concomitant]
     Active Substance: NAPROXEN SODIUM
     Dosage: 200 MG, UNK
     Route: 048
     Dates: start: 2000
  3. MORPHINE SULFATE. [Concomitant]
     Active Substance: MORPHINE SULFATE
     Dosage: 2-90 MG, UNK
     Route: 042
     Dates: start: 20160208, end: 20161013
  4. FENTANYL. [Concomitant]
     Active Substance: FENTANYL
     Dosage: 200 MUG, UNK
     Route: 042
     Dates: start: 20160208, end: 20160208
  5. OMEPRAZOLE. [Concomitant]
     Active Substance: OMEPRAZOLE
     Dosage: 20 MG, UNK
     Route: 048
     Dates: start: 2005
  6. VERSED [Concomitant]
     Active Substance: MIDAZOLAM HYDROCHLORIDE
     Dosage: 4 MG, UNK
     Route: 042
     Dates: start: 20160208, end: 20160208
  7. CALTRATE WITH VITAMIN D [Concomitant]
     Active Substance: CALCIUM CARBONATE\CHOLECALCIFEROL
     Dosage: 1 UNK, UNK
     Route: 048
     Dates: start: 201511
  8. ENALAPRIL [Concomitant]
     Active Substance: ENALAPRIL
     Dosage: 40 MG, UNK
     Route: 048
     Dates: start: 20140609
  9. ONDANSETRON [Concomitant]
     Active Substance: ONDANSETRON
     Dosage: 16 MG, UNK
     Route: 042
     Dates: start: 20160209

REACTIONS (1)
  - Alanine aminotransferase increased [Recovered/Resolved]

NARRATIVE: CASE EVENT DATE: 20160210
